FAERS Safety Report 8226225-5 (Version None)
Quarter: 2012Q1

REPORT INFORMATION
  Report Type: 
  Country: None (occurrence: None)
  Receive Date: 20120307
  Receipt Date: 20100426
  Transmission Date: 20120608
  Serious: No
  Sender: FDA-Public Use
  Company Number: PHHY2010US21367

PATIENT
  Age: 39 Year
  Sex: Female

DRUGS (8)
  1. NARCOTICS [Concomitant]
  2. COMPAZINE [Suspect]
     Dosage: 10 MG EVERY 4-6 HOURS, ORAL
     Route: 048
  3. AFINITOR [Suspect]
     Indication: RENAL CELL CARCINOMA
     Dosage: 10 MG, QD, ORAL
     Route: 048
  4. ANXIOLYTICS (NO INGREDIENTS/SUBSTANCES) [Concomitant]
  5. PHENERGAN HCL [Concomitant]
  6. ATIVAN [Suspect]
     Dosage: 1 MG EVERY 12 HRS ORAL
  7. SYNTHROID [Concomitant]
  8. HYDROCODONE BITARTRATE [Suspect]
     Dosage: ORAL
     Route: 048

REACTIONS (2)
  - BLISTER [None]
  - BURNING SENSATION [None]
